FAERS Safety Report 16461057 (Version 2)
Quarter: 2019Q2

REPORT INFORMATION
  Report Type: Report from Study
  Country: JP (occurrence: JP)
  Receive Date: 20190620
  Receipt Date: 20190627
  Transmission Date: 20190711
  Serious: Yes (Hospitalization, Other)
  Sender: FDA-Public Use
  Company Number: JP-BRISTOL-MYERS SQUIBB COMPANY-BMS-2019-032319

PATIENT
  Age: 45 Year
  Sex: Female
  Weight: 70.3 kg

DRUGS (2)
  1. NIVOLUMAB [Suspect]
     Active Substance: NIVOLUMAB
     Indication: MALIGNANT MELANOMA
     Dosage: 80 MILLIGRAM
     Route: 041
     Dates: start: 20190214, end: 20190307
  2. IPILIMUMAB [Suspect]
     Active Substance: IPILIMUMAB
     Indication: MALIGNANT MELANOMA
     Dosage: 3 MILLILITRE PER SQUARE METRE
     Route: 041
     Dates: start: 20190214, end: 20190307

REACTIONS (10)
  - Dry skin [Unknown]
  - Insomnia [Recovering/Resolving]
  - Back pain [Unknown]
  - Pruritus [Recovering/Resolving]
  - Hyperkalaemia [Recovered/Resolved]
  - Pyrexia [Recovered/Resolved]
  - Hepatic function abnormal [Recovered/Resolved]
  - Constipation [Unknown]
  - Chills [Unknown]
  - Malaise [Recovering/Resolving]

NARRATIVE: CASE EVENT DATE: 20190226
